FAERS Safety Report 4312566-0 (Version None)
Quarter: 2004Q1

REPORT INFORMATION
  Report Type: 
  Country: None (occurrence: None)
  Receive Date: 20040302
  Receipt Date: 20031224
  Transmission Date: 20041129
  Serious: No
  Sender: FDA-Public Use
  Company Number: 200331015BWH

PATIENT
  Age: 56 Year
  Sex: Male
  Weight: 96.1626 kg

DRUGS (6)
  1. LEVITRA [Suspect]
     Dosage: 10 MG PRN ORAL
     Route: 048
  2. VIAGRA [Concomitant]
  3. ALBUTEROL [Concomitant]
  4. FLONASE [Concomitant]
  5. PROTONIX [Concomitant]
  6. ACCOLATE [Concomitant]

REACTIONS (3)
  - FEELING ABNORMAL [None]
  - HEADACHE [None]
  - PALPITATIONS [None]
